FAERS Safety Report 25488587 (Version 1)
Quarter: 2025Q2

REPORT INFORMATION
  Report Type: Spontaneous
  Country: ZA (occurrence: ZA)
  Receive Date: 20250627
  Receipt Date: 20250627
  Transmission Date: 20250717
  Serious: Yes (Other)
  Sender: BAYER HEALTHCARE PHARMACEUTICALS INC.
  Company Number: ZA-BAYER-2025A084787

PATIENT
  Age: 53 Year
  Sex: Female

DRUGS (16)
  1. ANGELIQ [Suspect]
     Active Substance: DROSPIRENONE\ESTRADIOL
     Dosage: 1 DF, QD
     Route: 048
  2. Fexo [Concomitant]
     Dosage: 180 MG, QD
     Route: 048
  3. Allecet [Concomitant]
     Dosage: 10 MG, QD
     Route: 048
  4. MELATONIN [Concomitant]
     Active Substance: MELATONIN
     Dosage: 2 MG, QD
     Route: 048
  5. DULOXETINE HYDROCHLORIDE [Concomitant]
     Active Substance: DULOXETINE HYDROCHLORIDE
     Dosage: 30 MG, QD
     Route: 048
  6. DULOXETINE HYDROCHLORIDE [Concomitant]
     Active Substance: DULOXETINE HYDROCHLORIDE
     Dosage: 60 MG, QD
     Route: 048
  7. IVABRADINE HYDROCHLORIDE [Concomitant]
     Active Substance: IVABRADINE HYDROCHLORIDE
     Dosage: 5 MG, QD
     Route: 048
  8. ETIFOXINE [Concomitant]
     Active Substance: ETIFOXINE
     Dosage: 50 MG, BID
     Route: 048
  9. DORMONOCT [Concomitant]
     Active Substance: LOPRAZOLAM
     Dosage: 2 MG, QD
     Route: 048
  10. ATORVASTATIN [Concomitant]
     Active Substance: ATORVASTATIN
     Dosage: 20 MG, QD
     Route: 048
  11. VYVANSE [Concomitant]
     Active Substance: LISDEXAMFETAMINE DIMESYLATE
     Dosage: 30 MG, QD
     Route: 048
  12. Melnoc xr [Concomitant]
     Dosage: 2 MG, QD
     Route: 048
  13. Tibolone actor [Concomitant]
     Dosage: 2.5 MG, QD
     Route: 048
  14. DOXYCYCLINE HYDROCHLORIDE [Concomitant]
     Active Substance: DOXYCYCLINE HYDROCHLORIDE
     Dosage: 100 MG, QD
     Route: 048
  15. PREMARIN [Concomitant]
     Active Substance: ESTROGENS, CONJUGATED
     Route: 048
  16. ASPIRIN [Concomitant]
     Active Substance: ASPIRIN
     Dosage: 100 MG, QD
     Route: 048

REACTIONS (1)
  - Lupus-like syndrome [None]
